FAERS Safety Report 25012133 (Version 1)
Quarter: 2025Q1

REPORT INFORMATION
  Report Type: Spontaneous
  Country: CN (occurrence: CN)
  Receive Date: 20250226
  Receipt Date: 20250226
  Transmission Date: 20250409
  Serious: Yes (Other)
  Sender: BAXTER
  Company Number: None

PATIENT
  Age: 79 Year
  Sex: Female
  Weight: 50 kg

DRUGS (3)
  1. MANNITOL [Suspect]
     Active Substance: MANNITOL
     Indication: Nerve oedema
     Route: 041
     Dates: start: 20241122, end: 20241123
  2. MANNITOL [Suspect]
     Active Substance: MANNITOL
     Indication: Back pain
  3. MANNITOL [Suspect]
     Active Substance: MANNITOL
     Indication: Abdominal pain

REACTIONS (3)
  - Rash [Recovered/Resolved]
  - Rash erythematous [Recovered/Resolved]
  - Rash pruritic [Recovered/Resolved]

NARRATIVE: CASE EVENT DATE: 20241123
